FAERS Safety Report 16767121 (Version 2)
Quarter: 2019Q3

REPORT INFORMATION
  Report Type: Spontaneous
  Country: FR (occurrence: FR)
  Receive Date: 20190903
  Receipt Date: 20190917
  Transmission Date: 20191005
  Serious: Yes (Hospitalization, Other)
  Sender: FDA-Public Use
  Company Number: FR-MYLANLABS-2019M1081363

PATIENT
  Age: 35 Year
  Sex: Male

DRUGS (5)
  1. PARKINANE [Suspect]
     Active Substance: TRIHEXYPHENIDYL HYDROCHLORIDE
     Indication: PRODUCT USED FOR UNKNOWN INDICATION
     Dosage: INT?GRALIT? DU SEMAINIER
     Route: 048
     Dates: start: 20171114, end: 20171114
  2. OLANZAPINE. [Suspect]
     Active Substance: OLANZAPINE
     Indication: PRODUCT USED FOR UNKNOWN INDICATION
     Dosage: INT?GRALIT? DU SEMAINIER (20 MG)
     Route: 048
     Dates: start: 20171114, end: 20171114
  3. ALPRAZOLAM. [Suspect]
     Active Substance: ALPRAZOLAM
     Indication: PRODUCT USED FOR UNKNOWN INDICATION
     Dosage: 3 BOITES DE 30 CP DE 0.5MG
     Route: 048
     Dates: start: 20171114, end: 20171114
  4. LOXAPAC                            /00401801/ [Suspect]
     Active Substance: LOXAPINE
     Indication: PRODUCT USED FOR UNKNOWN INDICATION
     Dosage: 4 BOITES DE 30 CP DE 50 MG
     Route: 048
     Dates: start: 20171114, end: 20171114
  5. TERALITHE [Suspect]
     Active Substance: LITHIUM CARBONATE
     Indication: PRODUCT USED FOR UNKNOWN INDICATION
     Dosage: INT?GRALIT? DU SEMAINIER
     Route: 048
     Dates: start: 20171114, end: 20171114

REACTIONS (5)
  - Suicide attempt [Unknown]
  - Hypothermia [Recovered/Resolved]
  - Toxicity to various agents [Recovered/Resolved]
  - Miosis [Recovered/Resolved]
  - Somnolence [Recovered/Resolved]

NARRATIVE: CASE EVENT DATE: 20171114
